FAERS Safety Report 6663900-8 (Version None)
Quarter: 2010Q2

REPORT INFORMATION
  Report Type: 
  Country: None (occurrence: None)
  Receive Date: 20100401
  Receipt Date: 20100324
  Transmission Date: 20101027
  Serious: Yes (Hospitalization)
  Sender: FDA-Public Use
  Company Number: US-MERCK-0912USA01855

PATIENT
  Age: 73 Year
  Sex: Female

DRUGS (6)
  1. JANUMET [Suspect]
     Indication: DIABETES MELLITUS
     Route: 048
     Dates: start: 20090901, end: 20091214
  2. JANUMET [Suspect]
     Route: 048
     Dates: start: 20100108
  3. GLYBURIDE [Concomitant]
     Route: 065
  4. RAMIPRIL [Concomitant]
     Route: 065
  5. NEXIUM [Concomitant]
     Route: 065
  6. METFORMIN [Concomitant]
     Route: 065
     Dates: start: 20091215, end: 20100108

REACTIONS (4)
  - BLOOD PRESSURE FLUCTUATION [None]
  - DYSKINESIA [None]
  - EXCESSIVE EYE BLINKING [None]
  - HEADACHE [None]
